FAERS Safety Report 18221883 (Version 5)
Quarter: 2020Q4

REPORT INFORMATION
  Report Type: Report from Study
  Country: CA (occurrence: CA)
  Receive Date: 20200902
  Receipt Date: 20201012
  Transmission Date: 20210113
  Serious: Yes (Death, Hospitalization, Other)
  Sender: FDA-Public Use
  Company Number: CA-TAKEDA-2020TUS036932

PATIENT
  Age: 62 Year
  Sex: Male

DRUGS (1)
  1. VEDOLIZUMAB [Suspect]
     Active Substance: VEDOLIZUMAB
     Indication: GRAFT VERSUS HOST DISEASE
     Dosage: 300 MILLIGRAM
     Route: 042
     Dates: start: 20200728, end: 20200728

REACTIONS (3)
  - COVID-19 [Fatal]
  - COVID-19 pneumonia [Fatal]
  - Off label use [Unknown]

NARRATIVE: CASE EVENT DATE: 20200728
